FAERS Safety Report 16811649 (Version 1)
Quarter: 2019Q3

REPORT INFORMATION
  Report Type: Report from Study
  Country: NZ (occurrence: NZ)
  Receive Date: 20190916
  Receipt Date: 20190916
  Transmission Date: 20191005
  Serious: Yes (Death, Other)
  Sender: FDA-Public Use
  Company Number: NZ-JNJFOC-20190903595

PATIENT

DRUGS (1)
  1. IBRUTINIB [Suspect]
     Active Substance: IBRUTINIB
     Indication: CHRONIC LYMPHOCYTIC LEUKAEMIA RECURRENT
     Route: 048

REACTIONS (21)
  - Rash [Unknown]
  - Sepsis [Fatal]
  - Contusion [Unknown]
  - Arthralgia [Unknown]
  - Neutropenia [Unknown]
  - Peripheral swelling [Unknown]
  - Muscle spasms [Unknown]
  - Nausea [Unknown]
  - Pneumonitis [Unknown]
  - Headache [Unknown]
  - Vision blurred [Unknown]
  - Onychoclasis [Unknown]
  - Arrhythmia [Unknown]
  - Haemorrhage [Unknown]
  - Colitis [Unknown]
  - Infection [Unknown]
  - Dyspepsia [Unknown]
  - Diarrhoea [Unknown]
  - Uveitis [Unknown]
  - Mouth ulceration [Unknown]
  - Epstein-Barr virus infection [Unknown]
